FAERS Safety Report 5740290-6 (Version None)
Quarter: 2008Q2

REPORT INFORMATION
  Report Type: 
  Country: None (occurrence: None)
  Receive Date: 20080516
  Receipt Date: 20080507
  Transmission Date: 20081010
  Serious: Yes (Life-Threatening)
  Sender: FDA-Public Use
  Company Number: JP-BAYER-200610683BYL

PATIENT
  Age: 70 Year
  Sex: Female
  Weight: 43 kg

DRUGS (13)
  1. CIPROXAN-I.V. [Suspect]
     Indication: PNEUMONIA
     Dosage: TOTAL DAILY DOSE: 300 MG  UNIT DOSE: 300 MG
     Route: 042
     Dates: start: 20060524, end: 20060524
  2. CIPROXAN-I.V. [Suspect]
     Dosage: TOTAL DAILY DOSE: 600 MG  UNIT DOSE: 300 MG
     Route: 042
     Dates: start: 20060525, end: 20060525
  3. SULFAMETHOXAZOLE AND TRIMETHOPRIM [Suspect]
     Indication: METHICILLIN-RESISTANT STAPHYLOCOCCAL AUREUS TEST POSITIVE
     Route: 048
  4. AMARYL [Suspect]
     Indication: TYPE 2 DIABETES MELLITUS
     Dosage: TOTAL DAILY DOSE: 1 MG  UNIT DOSE: 1 MG
     Route: 048
     Dates: end: 20060526
  5. PRODIF [Concomitant]
     Dosage: TOTAL DAILY DOSE: 400 MG
     Route: 042
     Dates: start: 20060524, end: 20060527
  6. METHYLPREDNISOLONE [Concomitant]
     Route: 065
  7. CALCIUM L-ASPARTATE [Concomitant]
     Route: 065
  8. FUDOSTEINE [Concomitant]
     Route: 048
  9. MAGNESIUM OXIDE [Concomitant]
     Route: 048
  10. ESTAZOLAM [Concomitant]
     Route: 048
  11. OMEPRAZOLE [Concomitant]
     Route: 065
  12. ALFACALCIDOL [Concomitant]
     Route: 048
  13. FUROSEMIDE [Concomitant]
     Route: 065

REACTIONS (1)
  - HYPOGLYCAEMIA [None]
